FAERS Safety Report 6346588-5 (Version None)
Quarter: 2009Q3

REPORT INFORMATION
  Report Type: 
  Country: None (occurrence: None)
  Receive Date: 20090827
  Receipt Date: 20090730
  Transmission Date: 20100115
  Serious: Yes (Other)
  Sender: FDA-Public Use
  Company Number: CHPA2009US16296

PATIENT
  Age: 54 Year
  Sex: Female
  Weight: 40.8 kg

DRUGS (2)
  1. BENEFIBER FIBER SUPP VIT B + FOLIC ACID (WHEAT DEXTRIN) POWDER [Suspect]
     Indication: MEDICAL DIET
     Dosage: 2 TSP. IN THE A.M. AND 1 TSP. HS, QD, ORAL
     Route: 048
     Dates: start: 20080101
  2. DRUG THERAPY NOS (DRUG THERAPY NOS) [Concomitant]

REACTIONS (1)
  - PANCREATITIS [None]
